FAERS Safety Report 22745135 (Version 3)
Quarter: 2024Q1

REPORT INFORMATION
  Report Type: Spontaneous
  Country: US (occurrence: US)
  Receive Date: 20230725
  Receipt Date: 20240122
  Transmission Date: 20240410
  Serious: No
  Sender: FDA-Public Use
  Company Number: US-AMGEN-USASP2023128884

PATIENT
  Age: 68 Year
  Sex: Female

DRUGS (7)
  1. PROLIA [Suspect]
     Active Substance: DENOSUMAB
     Indication: Osteoporosis postmenopausal
     Dosage: 60 MILLIGRAM, Q6MO
     Route: 058
     Dates: start: 20180816
  2. SIMVASTATIN [Concomitant]
     Active Substance: SIMVASTATIN
     Dosage: 40 MILLIGRAM, QD
  3. VITAMIN C [Concomitant]
     Active Substance: ASCORBIC ACID
     Dosage: UNK UNK, QD
  4. CALCIUM\VITAMIN D [Concomitant]
     Active Substance: CALCIUM\VITAMIN D
     Dosage: UNK UNK, BID
  5. LISINOPRIL [Concomitant]
     Active Substance: LISINOPRIL
     Dosage: 40 MILLIGRAM, QD
     Route: 048
  6. OMEGA 3 [Concomitant]
     Active Substance: CAPSAICIN
     Dosage: 500 MILLIGRAM, BID
     Route: 048
  7. VITAMIN B COMPLEX [Concomitant]
     Active Substance: CYANOCOBALAMIN\DEXPANTHENOL\NIACINAMIDE\PYRIDOXINE HYDROCHLORIDE\RIBOFLAVIN 5^-PHOSPHATE SODIUM\THIA
     Dosage: UNK UNK, QD
     Route: 048

REACTIONS (5)
  - Rash [Recovered/Resolved]
  - Drug hypersensitivity [Unknown]
  - Atrophic vulvovaginitis [Unknown]
  - Myalgia [Unknown]
  - Weight increased [Unknown]

NARRATIVE: CASE EVENT DATE: 20190201
